FAERS Safety Report 12075271 (Version 1)
Quarter: 2016Q1

REPORT INFORMATION
  Report Type: Spontaneous
  Country: US (occurrence: US)
  Receive Date: 20160212
  Receipt Date: 20160212
  Transmission Date: 20160526
  Serious: No
  Sender: FDA-Public Use
  Company Number: ALCN2016US001194

PATIENT
  Age: 89 Year
  Sex: Male

DRUGS (2)
  1. AKTEN [Concomitant]
     Active Substance: LIDOCAINE HYDROCHLORIDE
     Indication: PREOPERATIVE CARE
     Dosage: 1 GTT, EVERY 5 MINUTES
     Route: 065
     Dates: start: 20151207, end: 20151207
  2. PROPARACAINE HCL [Suspect]
     Active Substance: PROPARACAINE HYDROCHLORIDE
     Indication: PREOPERATIVE CARE
     Dosage: 1 GTT, EVERY 5 MINUTES
     Route: 065
     Dates: start: 20151207, end: 20151207

REACTIONS (1)
  - Drug ineffective [Recovered/Resolved]

NARRATIVE: CASE EVENT DATE: 20151207
